FAERS Safety Report 8437247-3 (Version None)
Quarter: 2012Q2

REPORT INFORMATION
  Report Type: 
  Country: None (occurrence: None)
  Receive Date: 20120614
  Receipt Date: 20120229
  Transmission Date: 20120825
  Serious: No
  Sender: FDA-Public Use
  Company Number: US-AMGEN-USASP2012013632

PATIENT
  Age: 73 Year
  Sex: Female

DRUGS (10)
  1. VITAMIN D [Concomitant]
  2. NEURONTIN [Suspect]
     Dates: start: 20111101, end: 20120101
  3. VIACTIV                            /00751501/ [Concomitant]
  4. NAPROXEN (ALEVE) [Concomitant]
  5. LEVOXYL [Concomitant]
  6. SLOW-MAG [Concomitant]
  7. PROLIA [Suspect]
     Indication: OSTEOPOROSIS
     Dosage: 60 MG, Q6MO
     Dates: start: 20111214
  8. EXTRA STRENGTH TYLENOL [Concomitant]
  9. CENTRUM SILVER                     /01292501/ [Concomitant]
  10. NEURONTIN #2 [Concomitant]
     Dosage: UNK
     Dates: start: 20111101, end: 20120101

REACTIONS (7)
  - PARAESTHESIA [None]
  - NASOPHARYNGITIS [None]
  - BURNING SENSATION [None]
  - PRURITUS [None]
  - OROPHARYNGEAL PAIN [None]
  - HYPERSENSITIVITY [None]
  - COUGH [None]
